FAERS Safety Report 7944761-3 (Version None)
Quarter: 2011Q4

REPORT INFORMATION
  Report Type: 
  Country: None (occurrence: None)
  Receive Date: 20111114
  Receipt Date: 20110906
  Transmission Date: 20120403
  Serious: No
  Sender: FDA-Public Use
  Company Number: 1000010588

PATIENT

DRUGS (1)
  1. SAVELLA [Suspect]

REACTIONS (2)
  - FLUSHING [None]
  - BLOOD PRESSURE INCREASED [None]
